FAERS Safety Report 7550977-0 (Version None)
Quarter: 2011Q2

REPORT INFORMATION
  Report Type: 
  Country: None (occurrence: None)
  Receive Date: 20110616
  Receipt Date: 20110113
  Transmission Date: 20111010
  Serious: No
  Sender: FDA-Public Use
  Company Number: US-MYLANLABS-2011S1000995

PATIENT
  Age: 74 Year
  Sex: Male
  Weight: 97.52 kg

DRUGS (6)
  1. SOTALOL HYDROCHLORIDE [Suspect]
     Indication: ARRHYTHMIA
     Route: 048
     Dates: start: 20100101
  2. PROGRAF [Concomitant]
     Indication: PROPHYLAXIS AGAINST TRANSPLANT REJECTION
     Route: 048
  3. DIGOXIN [Concomitant]
     Indication: HEART RATE IRREGULAR
     Route: 048
  4. ZETIA [Concomitant]
     Indication: BLOOD CHOLESTEROL
     Route: 048
  5. WARFARIN SODIUM [Concomitant]
     Indication: ANTICOAGULANT THERAPY
     Route: 048
  6. FLECAINIDE ACETATE [Suspect]
     Indication: ARRHYTHMIA
     Route: 048

REACTIONS (4)
  - DYSPNOEA [None]
  - MENTAL IMPAIRMENT [None]
  - DECREASED APPETITE [None]
  - SOMNOLENCE [None]
